FAERS Safety Report 5167838-7 (Version None)
Quarter: 2006Q4

REPORT INFORMATION
  Report Type: 
  Country: None (occurrence: None)
  Receive Date: 20061130
  Receipt Date: 20061117
  Transmission Date: 20070319
  Serious: Yes (Other)
  Sender: FDA-Public Use
  Company Number: 2006131231

PATIENT
  Age: 52 Year
  Sex: Female
  Weight: 68.0396 kg

DRUGS (7)
  1. CHANTIX [Suspect]
     Indication: SMOKING CESSATION THERAPY
     Dosage: SEE IMAGE
     Route: 048
     Dates: end: 20061022
  2. CHANTIX [Suspect]
     Indication: TOBACCO ABUSE
     Dosage: SEE IMAGE
     Route: 048
     Dates: end: 20061022
  3. CHANTIX [Suspect]
     Indication: SMOKING CESSATION THERAPY
     Dosage: SEE IMAGE
     Route: 048
     Dates: start: 20060921
  4. CHANTIX [Suspect]
     Indication: TOBACCO ABUSE
     Dosage: SEE IMAGE
     Route: 048
     Dates: start: 20060921
  5. LIPITOR [Concomitant]
  6. TYLENOL [Concomitant]
  7. TOPROL-XL [Suspect]

REACTIONS (6)
  - BLOOD PRESSURE DECREASED [None]
  - CONDITION AGGRAVATED [None]
  - DEPRESSION [None]
  - MALAISE [None]
  - NAUSEA [None]
  - NERVOUSNESS [None]
